FAERS Safety Report 8590766-1 (Version None)
Quarter: 2012Q3

REPORT INFORMATION
  Report Type: 
  Country: None (occurrence: None)
  Receive Date: 20120813
  Receipt Date: 20120807
  Transmission Date: 20120928
  Serious: Yes (Other)
  Sender: FDA-Public Use
  Company Number: US-PFIZER INC-2012193217

PATIENT
  Age: 47 Year

DRUGS (1)
  1. PREMPRO [Suspect]
     Dosage: 0.625/2.5MG 1 TAB BY MOUTH DAILY
     Route: 048

REACTIONS (5)
  - FATIGUE [None]
  - THYROID DISORDER [None]
  - MEMORY IMPAIRMENT [None]
  - IMPAIRED WORK ABILITY [None]
  - AUTOIMMUNE DISORDER [None]
